FAERS Safety Report 5850795-5 (Version None)
Quarter: 2008Q3

REPORT INFORMATION
  Report Type: 
  Country: None (occurrence: None)
  Receive Date: 20080818
  Receipt Date: 20080805
  Transmission Date: 20090109
  Serious: Yes (Death, Hospitalization)
  Sender: FDA-Public Use
  Company Number: 2008-00708

PATIENT
  Age: 73 Year
  Sex: Male
  Weight: 56 kg

DRUGS (14)
  1. VELCADE [Suspect]
     Indication: MULTIPLE MYELOMA
     Dosage: 2.00 MG, INTRAVENOUS
     Route: 042
     Dates: start: 20080118, end: 20080221
  2. DECADRON SRC [Concomitant]
  3. LENDORMIN D (BROTIZOLAM) [Concomitant]
  4. SULFAMETHOXAZOLE AND TRIMETHOPRIM [Concomitant]
  5. MUCOSTA (REBAMIPIDE) [Concomitant]
  6. ITRACONAZOLE [Concomitant]
  7. MAGNESIUM OXIDE (MAGNESIUM OXIDE) [Concomitant]
  8. METHYCOBAL (MECOBALAMIN) [Concomitant]
  9. ETHYL ICOSAPENTATE (ETHYL ICOSAPENTATE) [Concomitant]
  10. LEVOFLOXACIN [Concomitant]
  11. LOXONIN (LOXOPROFEN SODIUM) [Concomitant]
  12. MUCODYNE (CARBOCISTEINE) [Concomitant]
  13. ASTOMIN (DIMEMORFAN PHOSPHATE) [Concomitant]
  14. FAMOTIDINE [Concomitant]

REACTIONS (2)
  - DISEASE PROGRESSION [None]
  - INTERSTITIAL LUNG DISEASE [None]
